FAERS Safety Report 14580459 (Version 1)
Quarter: 2018Q1

REPORT INFORMATION
  Report Type: Spontaneous
  Country: FI (occurrence: FI)
  Receive Date: 20180228
  Receipt Date: 20180228
  Transmission Date: 20180509
  Serious: Yes (Other)
  Sender: FDA-Public Use
  Company Number: FI-CONCORDIA PHARMACEUTICALS INC.-E2B_00010187

PATIENT
  Age: 68 Year
  Sex: Female

DRUGS (11)
  1. REUMACON [Suspect]
     Active Substance: PODOFILOX
     Route: 065
  2. THYROXIN [Concomitant]
     Active Substance: LEVOTHYROXINE
     Indication: HYPOTHYROIDISM
  3. SALAZOPYRIN [Suspect]
     Active Substance: SULFASALAZINE
     Route: 065
  4. ARAVA [Suspect]
     Active Substance: LEFLUNOMIDE
     Route: 048
  5. MYOCRISIN (SODIUM AUROTHIOMALATE) [Suspect]
     Active Substance: GOLD SODIUM THIOMALATE
     Route: 051
  6. PROLIA [Concomitant]
     Active Substance: DENOSUMAB
     Indication: OSTEOPOROSIS
     Route: 065
  7. CALCIUM D [Concomitant]
     Active Substance: CALCIUM\VITAMIN D
     Route: 065
  8. RIDAURA [Suspect]
     Active Substance: AURANOFIN
     Route: 065
  9. HYDROXYCHLOROQUINE [Suspect]
     Active Substance: HYDROXYCHLOROQUINE
     Route: 065
  10. TREXAN [Suspect]
     Active Substance: METHOTREXATE SODIUM
     Route: 065
  11. HYDROCORTISONE. [Concomitant]
     Active Substance: HYDROCORTISONE
     Route: 065

REACTIONS (4)
  - Hypersensitivity [Unknown]
  - Proteinuria [Unknown]
  - Drug ineffective [Unknown]
  - Unevaluable event [Unknown]
